FAERS Safety Report 23830940 (Version 1)
Quarter: 2024Q2

REPORT INFORMATION
  Report Type: Spontaneous
  Country: DE (occurrence: DE)
  Receive Date: 20240508
  Receipt Date: 20240508
  Transmission Date: 20240716
  Serious: Yes (Other)
  Sender: FDA-Public Use
  Company Number: DE-FreseniusKabi-FK202207292

PATIENT
  Age: 39 Year
  Sex: Female

DRUGS (3)
  1. CLINDAMYCIN [Suspect]
     Active Substance: CLINDAMYCIN
     Indication: Dental care
     Dosage: 600 MG (0.5  DAY, MID APRIL 2022- MID MAY 2022)
     Route: 048
     Dates: start: 202204, end: 202205
  2. IBUPROFEN [Suspect]
     Active Substance: IBUPROFEN
     Indication: Dental care
     Dosage: UNK (MID APRIL 2022- MID MAY 2022 DOSE: 4)
     Route: 048
     Dates: start: 202204, end: 202205
  3. IDACIO [Suspect]
     Active Substance: ADALIMUMAB-AACF
     Indication: Hidradenitis
     Dosage: 40 MG
     Route: 058
     Dates: start: 2021

REACTIONS (3)
  - Abortion early [Unknown]
  - Exposure during pregnancy [Unknown]
  - Maternal exposure during pregnancy [Unknown]
